FAERS Safety Report 5729335-7 (Version None)
Quarter: 2008Q2

REPORT INFORMATION
  Report Type: 
  Country: None (occurrence: None)
  Receive Date: 20080501
  Receipt Date: 20080404
  Transmission Date: 20081010
  Serious: Yes (Hospitalization, Other)
  Sender: FDA-Public Use
  Company Number: 2008SP005968

PATIENT
  Age: 51 Year
  Sex: Female
  Weight: 108.4097 kg

DRUGS (25)
  1. PEG-INTRON [Suspect]
     Indication: HEPATITIS C
     Dosage: 180 MCG;QW;SC
     Route: 058
     Dates: start: 20080305, end: 20080414
  2. REBETOL [Suspect]
     Indication: HEPATITIS C
     Dosage: 1400 MG; PO
     Route: 048
     Dates: start: 20080305, end: 20080416
  3. AVALIDE [Concomitant]
  4. VICOPROFEN [Concomitant]
  5. CYMBALTA [Concomitant]
  6. PREMARIN [Concomitant]
  7. FOLIC ACID [Concomitant]
  8. FISH OIL [Concomitant]
  9. BLINDED PEGINTERFERON ALFA-2B (S-P) [Suspect]
     Indication: DRUG USE FOR UNKNOWN INDICATION
     Dosage: 54.5 MG; IV
     Route: 042
     Dates: start: 20080305, end: 20080414
  10. VITAMIN B-12 [Concomitant]
  11. FLONASE [Concomitant]
  12. AUGMENTIN '125' [Concomitant]
  13. IMODIUM [Concomitant]
  14. WELLBUTRIN XL [Concomitant]
  15. MORPHINE SULFATE [Concomitant]
  16. OXYCONTIN [Concomitant]
  17. RELACORE [Concomitant]
  18. PHENERGAN [Concomitant]
  19. CIPRO [Concomitant]
  20. ZOFRAN [Concomitant]
  21. TRAMADOL HCL [Concomitant]
  22. CIPRO [Concomitant]
  23. OXYCODONE HCL [Concomitant]
  24. FIBER-LAX [Concomitant]
  25. NEOSPORIN /00038301/ [Concomitant]

REACTIONS (21)
  - ANAEMIA [None]
  - ANOREXIA [None]
  - ASTHENIA [None]
  - BONE MARROW FAILURE [None]
  - DIARRHOEA [None]
  - DIZZINESS [None]
  - HAEMOGLOBIN DECREASED [None]
  - HYPOVOLAEMIA [None]
  - LARYNGITIS [None]
  - NAUSEA [None]
  - NEUTROPHIL COUNT DECREASED [None]
  - PHARYNGOLARYNGEAL PAIN [None]
  - PYREXIA [None]
  - RENAL FAILURE ACUTE [None]
  - RENAL INJURY [None]
  - RENAL TUBULAR NECROSIS [None]
  - RHABDOMYOLYSIS [None]
  - ROAD TRAFFIC ACCIDENT [None]
  - SPINAL COMPRESSION FRACTURE [None]
  - SYNCOPE [None]
  - VOMITING [None]
